FAERS Safety Report 21993109 (Version 1)
Quarter: 2023Q1

REPORT INFORMATION
  Report Type: Spontaneous
  Country: PL (occurrence: PL)
  Receive Date: 20230215
  Receipt Date: 20230215
  Transmission Date: 20230417
  Serious: Yes (Death, Life-Threatening)
  Sender: FDA-Public Use
  Company Number: None

PATIENT
  Age: 64 Year
  Sex: Male

DRUGS (6)
  1. ALTEPLASE [Suspect]
     Active Substance: ALTEPLASE
     Indication: Product used for unknown indication
     Dosage: POWDER AND SOLVENT FOR SOLUTION FOR INFUSION
     Route: 065
     Dates: start: 20230120, end: 20230120
  2. ALTEPLASE [Suspect]
     Active Substance: ALTEPLASE
     Dosage: POWDER AND SOLVENT FOR SOLUTION FOR INFUSION
     Route: 065
     Dates: start: 20230120, end: 20230120
  3. OMEPRAZOLE [Concomitant]
     Active Substance: OMEPRAZOLE
     Indication: Product used for unknown indication
     Route: 048
  4. ROSUVASTATIN CALCIUM [Concomitant]
     Active Substance: ROSUVASTATIN CALCIUM
     Indication: Product used for unknown indication
     Route: 048
  5. BIBLOC [BISOPROLOL FUMARATE] [Concomitant]
     Indication: Product used for unknown indication
     Route: 048
  6. DIURED [Concomitant]
     Indication: Product used for unknown indication
     Route: 048

REACTIONS (2)
  - Death [Fatal]
  - Anaphylactic shock [Unknown]

NARRATIVE: CASE EVENT DATE: 20230120
